FAERS Safety Report 10196988 (Version 1)
Quarter: 2014Q2

REPORT INFORMATION
  Report Type: Spontaneous
  Country: FR (occurrence: FR)
  Receive Date: 20140527
  Receipt Date: 20140527
  Transmission Date: 20141212
  Serious: Yes (Life-Threatening, Hospitalization)
  Sender: FDA-Public Use
  Company Number: FR-UCBSA-121742

PATIENT
  Age: 22 Year
  Sex: Female

DRUGS (6)
  1. KEPPRA [Suspect]
     Indication: EPILEPSY
     Dosage: STRENGTH: 500 MG
     Route: 048
     Dates: start: 201212
  2. RIVOTRIL [Suspect]
     Indication: MUSCLE SPASMS
     Dosage: STRENGTH: 2.5 MG/ML, 15 DROPS DAILY (5 DROPS 3 TIMES DAILY)
     Route: 048
     Dates: start: 20130415, end: 20130418
  3. LYRICA [Suspect]
     Dosage: STRENGTH: 150 MG
     Route: 048
     Dates: start: 20130415
  4. ZELITREX [Concomitant]
  5. IRINOTECAN [Concomitant]
  6. RAPAMUNE [Concomitant]

REACTIONS (1)
  - Coma [Recovered/Resolved]
